FAERS Safety Report 6145092-7 (Version None)
Quarter: 2009Q2

REPORT INFORMATION
  Report Type: 
  Country: None (occurrence: None)
  Receive Date: 20090406
  Receipt Date: 20090217
  Transmission Date: 20091009
  Serious: No
  Sender: FDA-Public Use
  Company Number: A0763602A

PATIENT
  Age: 6 Year
  Sex: Male
  Weight: 31.4 kg

DRUGS (4)
  1. ADVAIR HFA [Suspect]
     Indication: ASTHMA
     Dosage: 2PUFF TWICE PER DAY
     Route: 055
     Dates: start: 20061101, end: 20090114
  2. ALBUTEROL [Concomitant]
  3. SINGULAIR [Concomitant]
  4. ANTIBIOTICS [Concomitant]

REACTIONS (2)
  - FATIGUE [None]
  - PYREXIA [None]
